FAERS Safety Report 13582922 (Version 1)
Quarter: 2017Q2

REPORT INFORMATION
  Report Type: Spontaneous
  Country: US (occurrence: US)
  Receive Date: 20170525
  Receipt Date: 20170525
  Transmission Date: 20170830
  Serious: No
  Sender: FDA-Public Use
  Company Number: US-ALARA PHARMACEUTICAL CORPORATION-2021234

PATIENT
  Sex: Female

DRUGS (1)
  1. LEVO-T [Suspect]
     Active Substance: LEVOTHYROXINE SODIUM

REACTIONS (3)
  - Blister [Not Recovered/Not Resolved]
  - Rash erythematous [Not Recovered/Not Resolved]
  - Urticaria [Not Recovered/Not Resolved]
